FAERS Safety Report 5213044-7 (Version None)
Quarter: 2007Q1

REPORT INFORMATION
  Report Type: 
  Country: None (occurrence: None)
  Receive Date: 20070119
  Receipt Date: 20070109
  Transmission Date: 20070707
  Serious: Yes (Hospitalization, Disabling, Other)
  Sender: FDA-Public Use
  Company Number: 2006UW02341

PATIENT
  Age: 19066 Day
  Sex: Male

DRUGS (17)
  1. SEROQUEL [Suspect]
     Indication: BIPOLAR I DISORDER
     Route: 048
     Dates: start: 20060106, end: 20060111
  2. SEROQUEL [Suspect]
     Route: 048
     Dates: start: 20060112, end: 20060206
  3. SEROQUEL [Suspect]
     Route: 048
     Dates: start: 20060207, end: 20060207
  4. SEROQUEL [Suspect]
     Route: 048
     Dates: start: 20060208, end: 20060216
  5. BENZOTROPINE [Concomitant]
     Indication: BIPOLAR I DISORDER
     Route: 048
     Dates: start: 20050801
  6. BENZOTROPINE [Concomitant]
     Route: 048
     Dates: start: 20060218
  7. THIOTHIXENE [Concomitant]
     Indication: BIPOLAR I DISORDER
     Route: 048
     Dates: end: 20060105
  8. THIOTHIXENE [Concomitant]
     Dates: start: 20060106, end: 20060111
  9. CLONAZEPAM [Concomitant]
     Indication: BIPOLAR I DISORDER
     Route: 048
     Dates: start: 20051201, end: 20060118
  10. CLONAZEPAM [Concomitant]
     Route: 048
     Dates: start: 20060119, end: 20060122
  11. CLONAZEPAM [Concomitant]
     Dates: start: 20060123
  12. ATENOLOL [Concomitant]
     Indication: HYPERTENSION
     Route: 048
  13. HYDROCHLOROTHIAZIDE [Concomitant]
     Indication: HYPERTENSION
     Route: 048
  14. TYLENOL [Concomitant]
     Indication: INSOMNIA
     Route: 048
     Dates: start: 20060104, end: 20060104
  15. IBUPROFEN [Concomitant]
     Indication: HEADACHE
     Route: 048
     Dates: start: 20060124, end: 20060124
  16. LEVAQUIN [Concomitant]
     Route: 048
  17. PHENYTOIN SODIUM CAP [Concomitant]
     Route: 048

REACTIONS (3)
  - CONFUSIONAL STATE [None]
  - CONVULSION [None]
  - MENINGITIS ASEPTIC [None]
